FAERS Safety Report 12290343 (Version 1)
Quarter: 2016Q2

REPORT INFORMATION
  Report Type: Spontaneous
  Country: FR (occurrence: FR)
  Receive Date: 20160421
  Receipt Date: 20160421
  Transmission Date: 20160815
  Serious: Yes (Hospitalization)
  Sender: FDA-Public Use
  Company Number: FR-PFIZER INC-2016215522

PATIENT
  Age: 3 Year
  Sex: Female
  Weight: 14.5 kg

DRUGS (4)
  1. PARACETAMOL [Concomitant]
     Active Substance: ACETAMINOPHEN
     Indication: PYREXIA
  2. PARACETAMOL [Concomitant]
     Active Substance: ACETAMINOPHEN
     Indication: TONSILLITIS
     Dosage: UNK
     Dates: start: 20160326
  3. ADVILMED ENFANTS ET NOURRISSONS [Suspect]
     Active Substance: IBUPROFEN
     Indication: TONSILLITIS
  4. ADVILMED ENFANTS ET NOURRISSONS [Suspect]
     Active Substance: IBUPROFEN
     Indication: PYREXIA
     Dosage: 1 DF, 3X/DAY
     Route: 048
     Dates: start: 20160326, end: 20160331

REACTIONS (1)
  - Acute prerenal failure [Recovered/Resolved]

NARRATIVE: CASE EVENT DATE: 20160331
